FAERS Safety Report 8392656-6 (Version None)
Quarter: 2012Q2

REPORT INFORMATION
  Report Type: 
  Country: None (occurrence: None)
  Receive Date: 20120529
  Receipt Date: 20120523
  Transmission Date: 20120825
  Serious: Yes (Death)
  Sender: FDA-Public Use
  Company Number: DE-ASTRAZENECA-2012SE33216

PATIENT
  Sex: Male

DRUGS (1)
  1. BRILINTA [Suspect]
     Dosage: LOADING DOSAGE 180 MG ONCE/SINGLE ADMINISTRATION
     Route: 048

REACTIONS (1)
  - HAEMORRHAGE [None]
